FAERS Safety Report 6095170-6 (Version None)
Quarter: 2009Q1

REPORT INFORMATION
  Report Type: 
  Country: None (occurrence: None)
  Receive Date: 20090227
  Receipt Date: 20080310
  Transmission Date: 20090719
  Serious: No
  Sender: FDA-Public Use
  Company Number: A0707461A

PATIENT
  Age: 57 Year
  Sex: Male
  Weight: 81.8 kg

DRUGS (3)
  1. LAMICTAL [Suspect]
     Indication: BIPOLAR DISORDER
     Dosage: 25MG PER DAY
     Route: 048
     Dates: start: 20080131, end: 20080201
  2. ZOLOFT [Concomitant]
  3. OMEPRAZOLE [Concomitant]

REACTIONS (6)
  - AGITATION [None]
  - BLISTER [None]
  - DIARRHOEA [None]
  - HEADACHE [None]
  - PRURITUS GENERALISED [None]
  - RASH PAPULAR [None]
